FAERS Safety Report 19720949 (Version 8)
Quarter: 2022Q4

REPORT INFORMATION
  Report Type: Report from Study
  Country: US (occurrence: US)
  Receive Date: 20210819
  Receipt Date: 20221216
  Transmission Date: 20230113
  Serious: Yes (Hospitalization, Disabling, Other)
  Sender: FDA-Public Use
  Company Number: US-SANOFI-00726184

PATIENT
  Age: 59 Year
  Sex: Female

DRUGS (17)
  1. TERIFLUNOMIDE [Suspect]
     Active Substance: TERIFLUNOMIDE
     Indication: Multiple sclerosis
     Dosage: 14 MG, QD
     Route: 048
     Dates: start: 20160727
  2. LINZESS [Suspect]
     Active Substance: LINACLOTIDE
     Indication: Colitis
     Dosage: UNK
     Dates: start: 20221125
  3. LINZESS [Suspect]
     Active Substance: LINACLOTIDE
     Indication: Diverticulitis
  4. ATORVASTATIN CALCIUM [Concomitant]
     Active Substance: ATORVASTATIN CALCIUM
     Dosage: UNK
  5. VITAMINS NOS [Concomitant]
     Active Substance: VITAMINS
     Dosage: UNK
  6. GINGER ROOT [ZINGIBER OFFICINALE RHIZOME] [Concomitant]
     Dosage: UNK
  7. ERYTHROMYCIN [Concomitant]
     Active Substance: ERYTHROMYCIN
     Dosage: UNK
  8. HEPARIN SODIUM [Concomitant]
     Active Substance: HEPARIN SODIUM
     Dosage: UNK
  9. SODIUM CHLORIDE [Concomitant]
     Active Substance: SODIUM CHLORIDE
     Dosage: UNK
  10. GARLIC (DEODORIZED) [Concomitant]
     Dosage: UNK
  11. MAGNESIUM [Concomitant]
     Active Substance: MAGNESIUM
     Dosage: UNK
  12. HERBALS\TURMERIC [Concomitant]
     Active Substance: HERBALS\TURMERIC
     Dosage: UNK
  13. CLONIDINE [Concomitant]
     Active Substance: CLONIDINE
     Dosage: UNK
  14. LOSARTAN [Concomitant]
     Active Substance: LOSARTAN
     Dosage: UNK
  15. VITAMIN D3 [Concomitant]
     Active Substance: CHOLECALCIFEROL
     Dosage: UNK
  16. OSTEO BI-FLEX [CHONDROITIN SULFATE;GLUCOSAMINE HYDROCHLORIDE] [Concomitant]
     Dosage: UNK
  17. MATURE MULTIVITAMINS [Concomitant]
     Dosage: UNK

REACTIONS (36)
  - Myocardial infarction [Not Recovered/Not Resolved]
  - Seizure [Not Recovered/Not Resolved]
  - Diverticulitis [Not Recovered/Not Resolved]
  - Urinary retention [Not Recovered/Not Resolved]
  - Stress cardiomyopathy [Not Recovered/Not Resolved]
  - Arterial occlusive disease [Not Recovered/Not Resolved]
  - Nephrolithiasis [Unknown]
  - Gait disturbance [Unknown]
  - Disability [Not Recovered/Not Resolved]
  - Optic neuritis [Not Recovered/Not Resolved]
  - Neurodegenerative disorder [Unknown]
  - Wheelchair user [Not Recovered/Not Resolved]
  - Multiple sclerosis relapse [Not Recovered/Not Resolved]
  - Memory impairment [Not Recovered/Not Resolved]
  - Condition aggravated [Not Recovered/Not Resolved]
  - Intervertebral disc protrusion [Not Recovered/Not Resolved]
  - Tremor [Unknown]
  - Fall [Not Recovered/Not Resolved]
  - Dizziness [Not Recovered/Not Resolved]
  - COVID-19 [Not Recovered/Not Resolved]
  - Alopecia [Recovering/Resolving]
  - Nausea [Not Recovered/Not Resolved]
  - Urinary tract infection [Not Recovered/Not Resolved]
  - Muscle spasms [Not Recovered/Not Resolved]
  - Spinal laminectomy [Not Recovered/Not Resolved]
  - Dehydration [Unknown]
  - Colitis [Not Recovered/Not Resolved]
  - Malaise [Not Recovered/Not Resolved]
  - Pain [Unknown]
  - Cerebral disorder [Not Recovered/Not Resolved]
  - Eye pain [Not Recovered/Not Resolved]
  - Depression [Not Recovered/Not Resolved]
  - Cognitive disorder [Not Recovered/Not Resolved]
  - Staphylococcal infection [Not Recovered/Not Resolved]
  - Confusional state [Unknown]
  - Headache [Not Recovered/Not Resolved]

NARRATIVE: CASE EVENT DATE: 20180101
